FAERS Safety Report 17082588 (Version 1)
Quarter: 2019Q4

REPORT INFORMATION
  Report Type: Spontaneous
  Country: ES (occurrence: ES)
  Receive Date: 20191127
  Receipt Date: 20191127
  Transmission Date: 20200122
  Serious: Yes (Death)
  Sender: FDA-Public Use
  Company Number: ES-MYLANLABS-2019M1115723

PATIENT
  Age: 92 Year
  Sex: Female

DRUGS (4)
  1. COZAAR INICIO [Interacting]
     Active Substance: LOSARTAN POTASSIUM
     Indication: CARDIAC FAILURE
     Dosage: 12.5 MILLIGRAM, QD
     Route: 048
     Dates: start: 20170711, end: 20190610
  2. FUROSEMIDE. [Suspect]
     Active Substance: FUROSEMIDE
     Indication: CARDIAC FAILURE
     Dosage: 40 MG.1 COMPRIMIDO EN DESAYUNO Y 1
     Route: 048
     Dates: start: 20150616, end: 20190620
  3. ALDACTONE [Interacting]
     Active Substance: SPIRONOLACTONE
     Indication: CARDIAC FAILURE
     Dosage: 25 MILLIGRAM, QD
     Route: 048
     Dates: start: 20180724, end: 20190610
  4. HIGROTONA [Interacting]
     Active Substance: CHLORTHALIDONE
     Indication: HYPERTENSION
     Dosage: UN COMP EN LA MERIENDA SOLAMENTE LOS
     Route: 048
     Dates: start: 20190506, end: 20190610

REACTIONS (3)
  - Drug interaction [Unknown]
  - Dehydration [Fatal]
  - Hyponatraemia [Fatal]

NARRATIVE: CASE EVENT DATE: 20190610
